FAERS Safety Report 7095241-1 (Version None)
Quarter: 2010Q4

REPORT INFORMATION
  Report Type: 
  Country: None (occurrence: None)
  Receive Date: 20101111
  Receipt Date: 20101102
  Transmission Date: 20110411
  Serious: Yes (Other)
  Sender: FDA-Public Use
  Company Number: US-BAYER-201032435NA

PATIENT
  Age: 24 Year
  Sex: Female
  Weight: 46 kg

DRUGS (4)
  1. MIRENA [Suspect]
     Indication: CONTRACEPTION
     Dosage: FREQUENCY:CONTINUOUS
     Route: 015
     Dates: start: 20100729
  2. VALTREX [Concomitant]
     Route: 048
     Dates: start: 20100101
  3. PROZAC [Concomitant]
     Route: 048
     Dates: start: 20100101
  4. WELLBUTRIN [Concomitant]
     Route: 048
     Dates: start: 20100101

REACTIONS (8)
  - ABDOMINAL PAIN [None]
  - ANAEMIA [None]
  - DYSPNOEA [None]
  - DYSURIA [None]
  - GENITAL HAEMORRHAGE [None]
  - HEADACHE [None]
  - PELVIC INFLAMMATORY DISEASE [None]
  - WEIGHT DECREASED [None]
